FAERS Safety Report 6557588-4 (Version None)
Quarter: 2010Q1

REPORT INFORMATION
  Report Type: 
  Country: None (occurrence: None)
  Receive Date: 20100129
  Receipt Date: 20100118
  Transmission Date: 20100710
  Serious: Yes (Hospitalization)
  Sender: FDA-Public Use
  Company Number: US-CELGENEUS-163-50794-10011363

PATIENT
  Sex: Male

DRUGS (13)
  1. VIDAZA [Suspect]
     Route: 058
     Dates: start: 20091228, end: 20100104
  2. CISPLATIN [Suspect]
     Route: 051
     Dates: start: 20100104, end: 20100104
  3. LORAZEPAM [Concomitant]
     Indication: ANXIETY
     Route: 065
     Dates: start: 20091228
  4. OXYCODONE [Concomitant]
     Indication: DRUG USE FOR UNKNOWN INDICATION
     Route: 065
  5. GLYBURIDE [Concomitant]
     Route: 065
     Dates: start: 20091228
  6. METHOCARBAMOL [Concomitant]
     Route: 065
     Dates: start: 20100104
  7. PROZAC [Concomitant]
     Indication: DEPRESSION
     Route: 065
     Dates: start: 20100111
  8. MARINOL [Concomitant]
     Indication: DECREASED APPETITE
     Route: 065
     Dates: start: 20100111
  9. FERROUS SULFATE TAB [Concomitant]
     Dosage: 300MG/5ML
     Dates: start: 20100111
  10. ONDANSETRON [Concomitant]
     Indication: NAUSEA
     Route: 065
     Dates: start: 20091228
  11. LEVAQUIN [Concomitant]
     Indication: PROPHYLAXIS
     Route: 065
     Dates: start: 20100118
  12. LACTINEX [Concomitant]
     Indication: PROBIOTIC THERAPY
     Dosage: 1 PACK
     Route: 048
     Dates: start: 20100118
  13. RED BLOOD CELLS [Concomitant]
     Dosage: 2 UNITS
     Route: 051
     Dates: start: 20100101, end: 20100101

REACTIONS (2)
  - RENAL FAILURE ACUTE [None]
  - URINARY TRACT OBSTRUCTION [None]
